FAERS Safety Report 7001180-4 (Version None)
Quarter: 2010Q3

REPORT INFORMATION
  Report Type: 
  Country: None (occurrence: None)
  Receive Date: 20100920
  Receipt Date: 20090721
  Transmission Date: 20110219
  Serious: Yes (Other)
  Sender: FDA-Public Use
  Company Number: US-ASTRAZENECA-2007UW05910

PATIENT
  Age: 19933 Day
  Sex: Female

DRUGS (14)
  1. SEROQUEL [Suspect]
     Dosage: 25 MG TO 100 MG
     Route: 048
     Dates: start: 20050121
  2. PAXIL CR [Concomitant]
     Dosage: 12.5 MG TO 37.5 MG
     Dates: start: 20050121
  3. NEURONTIN [Concomitant]
     Dosage: 100 MG TO 400 MG
     Dates: start: 20050509
  4. ZOLOFT [Concomitant]
     Dosage: 50 MG TO 100 MG
     Dates: start: 20051206
  5. AMOXICILLIN [Concomitant]
     Dates: start: 20051229
  6. PLENDIL [Concomitant]
     Dates: start: 20060802
  7. ALPRAZOLAM [Concomitant]
     Dates: start: 20060802
  8. NEXIUM [Concomitant]
     Dates: start: 20060802
  9. ATACAND [Concomitant]
     Dates: start: 20060802
  10. ZOCOR [Concomitant]
     Dates: start: 20060802
  11. MOBIC [Concomitant]
     Dates: start: 20060802
  12. ZETIA [Concomitant]
     Dates: start: 20060802
  13. GLIMEPIRIDE [Concomitant]
     Dates: start: 20060802
  14. AVANDIA [Concomitant]
     Dates: start: 20060802

REACTIONS (3)
  - KETOACIDOSIS [None]
  - PANCREATITIS [None]
  - TYPE 2 DIABETES MELLITUS [None]
